FAERS Safety Report 13033637 (Version 2)
Quarter: 2016Q4

REPORT INFORMATION
  Report Type: Spontaneous
  Country: IT (occurrence: IT)
  Receive Date: 20161216
  Receipt Date: 20161222
  Transmission Date: 20170207
  Serious: Yes (Death, Other)
  Sender: FDA-Public Use
  Company Number: IT-CIPLA LTD.-2016IT23379

PATIENT

DRUGS (3)
  1. DOXORUBICIN [Suspect]
     Active Substance: DOXORUBICIN
     Indication: ENDOMETRIAL ADENOCARCINOMA
     Dosage: 20 MG/M2, BIWEEKLY ADMINISTRATION
     Route: 065
  2. CARBOPLATIN. [Suspect]
     Active Substance: CARBOPLATIN
     Indication: ENDOMETRIAL ADENOCARCINOMA
     Dosage: AUC 2, EVERY WEEK, THREE CYCLES
     Route: 065
  3. PACLITAXEL. [Suspect]
     Active Substance: PACLITAXEL
     Indication: ENDOMETRIAL ADENOCARCINOMA
     Dosage: 80 MG/M2, EVERY WEEK, THREE CYCLES
     Route: 065

REACTIONS (2)
  - Drug ineffective [Unknown]
  - Disease progression [Fatal]
